FAERS Safety Report 11452225 (Version 1)
Quarter: 2015Q3

REPORT INFORMATION
  Report Type: Spontaneous
  Country: US (occurrence: US)
  Receive Date: 20150903
  Receipt Date: 20150903
  Transmission Date: 20151125
  Serious: No
  Sender: FDA-Public Use
  Company Number: US-ROCHE-710030

PATIENT
  Age: 55 Year
  Sex: Male
  Weight: 82.6 kg

DRUGS (3)
  1. COPEGUS [Suspect]
     Active Substance: RIBAVIRIN
     Indication: HEPATITIS C
     Route: 048
     Dates: start: 20100325, end: 201012
  2. PEGASYS [Suspect]
     Active Substance: PEGINTERFERON ALFA-2A
     Indication: HEPATITIS C
     Route: 058
     Dates: start: 20100325, end: 201012
  3. ALCOHOL. [Suspect]
     Active Substance: ALCOHOL
     Indication: PRODUCT USED FOR UNKNOWN INDICATION
     Route: 065

REACTIONS (9)
  - Ill-defined disorder [Unknown]
  - Injection site erythema [Not Recovered/Not Resolved]
  - Nausea [Recovered/Resolved]
  - Gonorrhoea [Unknown]
  - Product quality issue [Unknown]
  - Pyrexia [Unknown]
  - Rash generalised [Not Recovered/Not Resolved]
  - Medication error [Unknown]
  - Weight decreased [Unknown]

NARRATIVE: CASE EVENT DATE: 201004
